FAERS Safety Report 16925664 (Version 2)
Quarter: 2019Q4

REPORT INFORMATION
  Report Type: Spontaneous
  Country: ES (occurrence: ES)
  Receive Date: 20191016
  Receipt Date: 20191023
  Transmission Date: 20200122
  Serious: Yes (Hospitalization, Other)
  Sender: FDA-Public Use
  Company Number: ES-SA-2019SA282492

PATIENT
  Age: 30 Year
  Sex: Male

DRUGS (3)
  1. ALEMTUZUMAB [Suspect]
     Active Substance: ALEMTUZUMAB
     Indication: IMMUNOSUPPRESSANT DRUG THERAPY
     Dosage: UNK
  2. TACROLIMUS. [Suspect]
     Active Substance: TACROLIMUS
     Indication: IMMUNOSUPPRESSANT DRUG THERAPY
     Dosage: HIGHER DOSES
  3. SIROLIMUS. [Suspect]
     Active Substance: SIROLIMUS
     Indication: IMMUNOSUPPRESSANT DRUG THERAPY

REACTIONS (7)
  - Adenovirus infection [Unknown]
  - Respiratory disorder [Unknown]
  - Acinetobacter infection [Unknown]
  - Pleural effusion [Recovered/Resolved]
  - Tuberculosis [Recovering/Resolving]
  - Off label use [Recovering/Resolving]
  - Aspergillus infection [Unknown]
